FAERS Safety Report 22162605 (Version 1)
Quarter: 2023Q1

REPORT INFORMATION
  Report Type: Spontaneous
  Country: CN (occurrence: CN)
  Receive Date: 20230331
  Receipt Date: 20230331
  Transmission Date: 20230418
  Serious: Yes (Hospitalization, Other)
  Sender: FDA-Public Use
  Company Number: CN-009507513-2303CHN010156

PATIENT
  Age: 79 Year
  Sex: Female
  Weight: 54.4 kg

DRUGS (1)
  1. KEYTRUDA [Suspect]
     Active Substance: PEMBROLIZUMAB
     Indication: Lip and/or oral cavity cancer
     Dosage: 200 MG, EVERY 21 DAYS, IV DRIP
     Route: 041
     Dates: start: 20221212, end: 20230306

REACTIONS (3)
  - Atrioventricular block complete [Recovering/Resolving]
  - Immune-mediated myocarditis [Recovering/Resolving]
  - Myasthenia gravis [Unknown]

NARRATIVE: CASE EVENT DATE: 20230301
